FAERS Safety Report 11322382 (Version 1)
Quarter: 2015Q3

REPORT INFORMATION
  Report Type: Spontaneous
  Country: US (occurrence: None)
  Receive Date: 20150729
  Receipt Date: 20150729
  Transmission Date: 20151125
  Serious: Yes (Death)
  Sender: FDA-Public Use
  Company Number: None

PATIENT
  Age: 61 Year
  Sex: Male

DRUGS (4)
  1. HYDROCO/APAP [Concomitant]
     Active Substance: ACETAMINOPHEN\HYDROCODONE
  2. ZYTIGA [Suspect]
     Active Substance: ABIRATERONE ACETATE
     Indication: PROSTATE CANCER
     Route: 048
     Dates: start: 20150723, end: 20150726
  3. FENTANYL. [Concomitant]
     Active Substance: FENTANYL
  4. HYDROMORPHON [Concomitant]
     Active Substance: HYDROMORPHONE

REACTIONS (1)
  - Death [None]

NARRATIVE: CASE EVENT DATE: 20150726
